FAERS Safety Report 24684113 (Version 2)
Quarter: 2025Q1

REPORT INFORMATION
  Report Type: Report from Study
  Country: US (occurrence: US)
  Receive Date: 20241202
  Receipt Date: 20250124
  Transmission Date: 20250408
  Serious: Yes (Death, Other)
  Sender: ACADIA PHARMACEUTICALS
  Company Number: US-ACADIA PHARMACEUTICALS INC.-ACA-2024-PIM-007610

PATIENT
  Age: 83 Year
  Sex: Female

DRUGS (12)
  1. NUPLAZID [Suspect]
     Active Substance: PIMAVANSERIN TARTRATE
     Indication: Parkinson^s disease
     Dosage: 34 MILLIGRAM, QD
     Route: 048
     Dates: start: 20231024, end: 20241120
  2. AMANTADINE [Concomitant]
     Active Substance: AMANTADINE
  3. CEPHALEXIN [Concomitant]
     Active Substance: CEPHALEXIN
  4. DONEPEZIL [Concomitant]
     Active Substance: DONEPEZIL
  5. OMEPRAZOLE [Concomitant]
     Active Substance: OMEPRAZOLE
  6. PRAMIPEXOLE [Concomitant]
     Active Substance: PRAMIPEXOLE
  7. RYTARY [Concomitant]
     Active Substance: CARBIDOPA\LEVODOPA
  8. ATROPINE SULF [Concomitant]
  9. CALCIUM [Concomitant]
     Active Substance: CALCIUM
  10. IPRATROPIUM [Concomitant]
     Active Substance: IPRATROPIUM
  11. VITAMINS [Concomitant]
     Active Substance: VITAMINS
  12. VITAMIN B12 [Concomitant]
     Active Substance: CYANOCOBALAMIN

REACTIONS (7)
  - Parkinson^s disease [Fatal]
  - Dementia [Fatal]
  - Encephalopathy [Fatal]
  - Gastrointestinal haemorrhage [Fatal]
  - Urinary tract infection [Fatal]
  - Acute myocardial infarction [Fatal]
  - Pneumonia [Fatal]

NARRATIVE: CASE EVENT DATE: 20241109
